FAERS Safety Report 5574623-0 (Version None)
Quarter: 2007Q4

REPORT INFORMATION
  Report Type: 
  Country: None (occurrence: None)
  Receive Date: 20071227
  Receipt Date: 20071214
  Transmission Date: 20080405
  Serious: Yes (Other)
  Sender: FDA-Public Use
  Company Number: DE-ROCHE-532881

PATIENT
  Age: 69 Year
  Sex: Female
  Weight: 70 kg

DRUGS (24)
  1. CELLCEPT [Suspect]
     Indication: VASCULITIS
     Dosage: DOSAGE REPORTED: 3 X 500 MG.
     Route: 048
     Dates: start: 20071025, end: 20071104
  2. CIPRO [Suspect]
     Dosage: DOSE REPORTED: 2 X 500 MG.
     Route: 048
     Dates: start: 20071101, end: 20071103
  3. TARGIN [Concomitant]
     Indication: PAIN
     Dosage: DOSE REPORTED: 2 X 1, STRENGTH REPORTED: 10/5 MG.
     Route: 048
     Dates: start: 20050101
  4. MARCUMAR [Concomitant]
     Indication: PULMONARY EMBOLISM
     Dosage: DOSAGE REPORTED: AFTER QUICK.
     Route: 048
  5. NOVALGIN [Concomitant]
     Indication: PAIN
     Dosage: DOSAGE REPORTED: 3 X 30 DROPS.
     Route: 048
  6. FOSAMAX [Concomitant]
     Dates: start: 20071022
  7. PASPERTIN [Concomitant]
     Dates: start: 20071101
  8. CYMBALTA [Concomitant]
     Dosage: FREQUENCY REPORTED: 0-0-30.
     Dates: start: 20071101, end: 20071101
  9. DIFLUCAN [Concomitant]
     Dates: start: 20071101, end: 20071101
  10. CALCIVIT D [Concomitant]
     Dosage: DOSE REPORTED: 600 MG - 400 IE 0-1-1.
  11. METOPROLOL SUCCINATE [Concomitant]
     Dosage: FREQUENCY REPORTED: 1-0-1
  12. TOREM [Concomitant]
     Dosage: DOSE AND FREQUENCY REPORTED: TOREM 10 1/2-1/2-0
  13. RAMIPRIL [Concomitant]
     Dosage: DOSE AND FREQUENCY REPORTED: 5 MG 0-1/2-1/2
  14. VITAMIN E [Concomitant]
     Dosage: DOSE REPORTED: 400 ^1 X 1^
  15. MAGIUM K FORTE [Concomitant]
     Dosage: FREQUENCY REPORTED: 1-1-2
  16. FOLIC ACID [Concomitant]
  17. AMPHO-MORONAL [Concomitant]
     Dosage: FREQUENCY REPORTED: 0-0-2 PIPETTES.
  18. LACTULOSE [Concomitant]
  19. SAB SIMPLEX [Concomitant]
     Dosage: FORM REPORTED: CHEWABLE TABLETS, FREQUENCY REPORTED: 2-2-2
  20. ALLOPURINOL [Concomitant]
     Dosage: DRUG NAME REPORTED: ALLO 100 ^1 X 1^
     Dates: end: 20071123
  21. PANTOPRAZOLE SODIUM [Concomitant]
     Dosage: REPORTED: 20 ^2 X 1^
  22. NOVALGIN [Concomitant]
     Dosage: WHEN NEEDED
  23. NITROGLYCERIN [Concomitant]
     Dosage: WHEN NEEDED
  24. DEXAEDO [Concomitant]
     Dosage: REPORTED: DEXO-EDO AT 1 X 1 DROPS ON BOTH SIDES.

REACTIONS (12)
  - ANGINA PECTORIS [None]
  - CUSHING'S SYNDROME [None]
  - HEPATITIS [None]
  - HEREDITARY HAEMOCHROMATOSIS [None]
  - HYPERTENSIVE CARDIOMEGALY [None]
  - NERVE ROOT LESION [None]
  - OSTEONECROSIS [None]
  - PANCREATITIS [None]
  - PARESIS [None]
  - RENAL FAILURE [None]
  - SJOGREN'S SYNDROME [None]
  - URINARY TRACT INFECTION [None]
